FAERS Safety Report 19722106 (Version 2)
Quarter: 2021Q3

REPORT INFORMATION
  Report Type: Spontaneous
  Country: JP (occurrence: JP)
  Receive Date: 20210819
  Receipt Date: 20210915
  Transmission Date: 20211014
  Serious: Yes (Hospitalization, Other)
  Sender: FDA-Public Use
  Company Number: JP-009507513-2108JPN001143J

PATIENT
  Age: 8 Decade
  Sex: Male

DRUGS (7)
  1. CORTISONE ACETATE. [Suspect]
     Active Substance: CORTISONE ACETATE
     Dosage: UNK
     Route: 065
  2. CARBOPLATIN. [Concomitant]
     Active Substance: CARBOPLATIN
     Indication: LARGE CELL LUNG CANCER RECURRENT
     Dosage: UNK
     Route: 065
     Dates: start: 20200430, end: 20210415
  3. NEO MINOPHAGEN C [CYSTEINE HYDROCHLORIDE;GLYCINE;GLYCYRRHIZIC ACID, AMMONIUM SALT] [Suspect]
     Active Substance: AMMONIUM GLYCYRRHIZATE\CYSTEINE HYDROCHLORIDE\GLYCINE
     Dosage: UNK
     Route: 065
  4. CELESTAMINE [Suspect]
     Active Substance: BETAMETHASONE\DEXCHLORPHENIRAMINE MALEATE
     Dosage: UNK
     Route: 065
  5. RESTAMIN [DIPHENHYDRAMINE] [Suspect]
     Active Substance: DIPHENHYDRAMINE
     Dosage: UNK
     Route: 065
  6. PEMETREXED DISODIUM [Concomitant]
     Active Substance: PEMETREXED DISODIUM
     Indication: LARGE CELL LUNG CANCER RECURRENT
     Dosage: UNK
     Route: 065
     Dates: start: 20200430, end: 20210415
  7. KEYTRUDA [Suspect]
     Active Substance: PEMBROLIZUMAB
     Indication: LARGE CELL LUNG CANCER RECURRENT
     Dosage: 200 MILLIGRAM, Q3W
     Route: 041
     Dates: start: 20200430, end: 20210415

REACTIONS (2)
  - Cholestasis [Recovering/Resolving]
  - Pruritus [Unknown]

NARRATIVE: CASE EVENT DATE: 20210727
